FAERS Safety Report 9242171 (Version 1)
Quarter: 2013Q2

REPORT INFORMATION
  Report Type: Spontaneous
  Country: US (occurrence: US)
  Receive Date: 20130419
  Receipt Date: 20130419
  Transmission Date: 20140414
  Serious: No
  Sender: FDA-Public Use
  Company Number: US-PFIZER INC-2013119904

PATIENT
  Age: 61 Year
  Sex: Female

DRUGS (3)
  1. AMLODIPINE BESILATE [Suspect]
     Indication: BLOOD PRESSURE
     Dosage: UNK
  2. BYSTOLIC [Suspect]
     Indication: BLOOD PRESSURE
     Dosage: UNK
  3. ENALAPRIL MALEATE [Suspect]
     Indication: BLOOD PRESSURE
     Dosage: UNK

REACTIONS (1)
  - Feeling abnormal [Unknown]
